FAERS Safety Report 24412616 (Version 1)
Quarter: 2024Q4

REPORT INFORMATION
  Report Type: Spontaneous
  Country: US (occurrence: US)
  Receive Date: 20241008
  Receipt Date: 20241008
  Transmission Date: 20250114
  Serious: Yes (Death, Hospitalization)
  Sender: CMP PHARMA
  Company Number: US-CMP PHARMA-2024CMP00057

PATIENT
  Age: 20 Year
  Sex: Female

DRUGS (2)
  1. AMLODIPINE [Suspect]
     Active Substance: AMLODIPINE BESYLATE
     Dosage: ^LARGE AMOUNTS^; 200-300 MG
     Route: 048
  2. FLUOXETINE [Concomitant]
     Active Substance: FLUOXETINE HYDROCHLORIDE
     Dosage: ^SOME^
     Route: 048

REACTIONS (5)
  - Overdose [Fatal]
  - Non-cardiogenic pulmonary oedema [Recovering/Resolving]
  - Vasoplegia syndrome [Not Recovered/Not Resolved]
  - Multiple organ dysfunction syndrome [Fatal]
  - Cardiac arrest [Fatal]
